FAERS Safety Report 14072263 (Version 1)
Quarter: 2017Q4

REPORT INFORMATION
  Report Type: Spontaneous
  Country: TR (occurrence: TR)
  Receive Date: 20171011
  Receipt Date: 20171011
  Transmission Date: 20180321
  Serious: Yes (Hospitalization)
  Sender: FDA-Public Use
  Company Number: TR-ALVOGEN-2015-ALVOGEN-019371

PATIENT
  Age: 83 Year
  Sex: Male

DRUGS (1)
  1. RIVASTIGMINE. [Suspect]
     Active Substance: RIVASTIGMINE
     Indication: DEMENTIA WITH LEWY BODIES
     Route: 062

REACTIONS (2)
  - Bundle branch block right [Recovered/Resolved]
  - Sinus bradycardia [Recovered/Resolved]
